FAERS Safety Report 24824629 (Version 1)
Quarter: 2025Q1

REPORT INFORMATION
  Report Type: Spontaneous
  Country: KR (occurrence: KR)
  Receive Date: 20250109
  Receipt Date: 20250109
  Transmission Date: 20250409
  Serious: Yes (Other)
  Sender: BOEHRINGER INGELHEIM
  Company Number: KR-BoehringerIngelheim-2025-BI-001103

PATIENT
  Age: 56 Year
  Sex: Male

DRUGS (5)
  1. EMPAGLIFLOZIN\METFORMIN HYDROCHLORIDE [Suspect]
     Active Substance: EMPAGLIFLOZIN\METFORMIN HYDROCHLORIDE
     Indication: Product used for unknown indication
     Dosage: UNIT DOSE : 1 DOSAGE FORM?FORM STRENGTH : JARDIANCE DUO TABLETS 5/500MG
     Dates: start: 20240104, end: 20240201
  2. ASPIRIN [Suspect]
     Active Substance: ASPIRIN
     Indication: Product used for unknown indication
     Dosage: UNIT DOSE : 1 DOSAGE FORM
     Dates: start: 20240104, end: 20240201
  3. TRIMETAZIDINE DIHYDROCHLORIDE [Suspect]
     Active Substance: TRIMETAZIDINE DIHYDROCHLORIDE
     Indication: Product used for unknown indication
     Dosage: UNIT DOSE : 1 DOSAGE FORM
     Dates: start: 20240104, end: 20240201
  4. AMLODIPINE BESYLATE\VALSARTAN [Suspect]
     Active Substance: AMLODIPINE BESYLATE\VALSARTAN
     Indication: Product used for unknown indication
     Dosage: UNIT DOSE : 1 DOSAGE FORM
     Dates: start: 20240104, end: 20240201
  5. EZETIMIBE\ROSUVASTATIN CALCIUM [Suspect]
     Active Substance: EZETIMIBE\ROSUVASTATIN CALCIUM
     Indication: Product used for unknown indication
     Dosage: UNIT DOSE : 1 DOSAGE FORM
     Dates: start: 20240104, end: 20240201

REACTIONS (1)
  - Shock hypoglycaemic [Unknown]

NARRATIVE: CASE EVENT DATE: 20240104
